FAERS Safety Report 8384848-7 (Version None)
Quarter: 2012Q2

REPORT INFORMATION
  Report Type: 
  Country: None (occurrence: None)
  Receive Date: 20120524
  Receipt Date: 20120510
  Transmission Date: 20120825
  Serious: Yes (Life-Threatening, Hospitalization, Other)
  Sender: FDA-Public Use
  Company Number: IT-PFIZER INC-2012113822

PATIENT
  Age: 73 Year
  Sex: Male

DRUGS (10)
  1. METFORMIN HCL [Concomitant]
     Dosage: UNK
  2. VERAPAMIL HYDROCHLORIDE [Concomitant]
     Dosage: UNK
  3. LASIX [Concomitant]
     Dosage: UNK
  4. NORVASC [Concomitant]
     Dosage: UNK
  5. NEXIUM [Concomitant]
     Dosage: UNK
  6. SIMVASTATIN [Concomitant]
     Dosage: UNK
  7. AMARYL [Concomitant]
     Dosage: UNK
  8. MINITRAN [Concomitant]
     Dosage: UNK
  9. RAMIPRIL [Suspect]
     Indication: HYPERTENSION
     Dosage: 2.5 MG, DAILY
     Route: 048
     Dates: start: 20120430, end: 20120509
  10. ASPIRIN [Concomitant]
     Dosage: UNK

REACTIONS (3)
  - HYPERTENSION [None]
  - OXYGEN SATURATION DECREASED [None]
  - ANGIOEDEMA [None]
